FAERS Safety Report 7638381-8 (Version None)
Quarter: 2011Q3

REPORT INFORMATION
  Report Type: 
  Country: None (occurrence: None)
  Receive Date: 20110726
  Receipt Date: 20110718
  Transmission Date: 20111222
  Serious: No
  Sender: FDA-Public Use
  Company Number: DL2011-0573

PATIENT
  Age: 19 Year
  Sex: Female

DRUGS (4)
  1. MIFEPRISTONE (MIFEPREX) [Suspect]
     Indication: ABORTION INDUCED
     Dosage: 200 MG, ORAL
     Route: 048
     Dates: start: 20101230
  2. MISOPROSTOL [Suspect]
     Dosage: 800 MCG, BUCCAL
     Route: 002
     Dates: start: 20110101
  3. DOXYCYCLINE [Concomitant]
  4. ZITHROMAX [Concomitant]

REACTIONS (7)
  - ABDOMINAL PAIN [None]
  - SWELLING FACE [None]
  - DRUG HYPERSENSITIVITY [None]
  - ABORTION INDUCED [None]
  - CONSTIPATION [None]
  - MATERNAL EXPOSURE DURING PREGNANCY [None]
  - CHEST PAIN [None]
